FAERS Safety Report 14784976 (Version 1)
Quarter: 2018Q2

REPORT INFORMATION
  Report Type: Spontaneous
  Country: US (occurrence: US)
  Receive Date: 20180413
  Receipt Date: 20180413
  Transmission Date: 20180711
  Serious: Yes (Other)
  Sender: FDA-Public Use
  Company Number: None

PATIENT
  Age: 54 Year
  Sex: Female
  Weight: 50.4 kg

DRUGS (1)
  1. XIAFLEX [Suspect]
     Active Substance: COLLAGENASE CLOSTRIDIUM HISTOLYTICUM
     Indication: DUPUYTREN^S CONTRACTURE
     Dosage: IINJECTED INTO COLLAGEN OVERGROWTH?
     Dates: start: 20180409, end: 20180409

REACTIONS (4)
  - Haemorrhage [None]
  - Arthralgia [None]
  - Axillary pain [None]
  - Injection site bruising [None]

NARRATIVE: CASE EVENT DATE: 20180409
